FAERS Safety Report 17405650 (Version 1)
Quarter: 2020Q1

REPORT INFORMATION
  Report Type: Spontaneous
  Country: HR (occurrence: HR)
  Receive Date: 20200212
  Receipt Date: 20200212
  Transmission Date: 20200409
  Serious: Yes (Other)
  Sender: FDA-Public Use
  Company Number: HR-TEVA-2020-HR-1183847

PATIENT
  Sex: Female

DRUGS (6)
  1. LOQUEN [Suspect]
     Active Substance: QUETIAPINE FUMARATE
     Route: 048
     Dates: start: 20191025, end: 20191025
  2. ZALDIAR [Suspect]
     Active Substance: ACETAMINOPHEN\TRAMADOL HYDROCHLORIDE
     Route: 048
     Dates: start: 20191025, end: 20191025
  3. LORSILAN [Suspect]
     Active Substance: LORAZEPAM
     Route: 048
     Dates: start: 20191025, end: 20191025
  4. TEOLIN [Suspect]
     Active Substance: THEOPHYLLINE
     Route: 048
     Dates: start: 20191025, end: 20191025
  5. VELAFAX [Suspect]
     Active Substance: VENLAFAXINE HYDROCHLORIDE
     Route: 048
     Dates: start: 20191025, end: 20191025
  6. SULPIRIDE [Suspect]
     Active Substance: SULPIRIDE
     Route: 048
     Dates: start: 20191025, end: 20191025

REACTIONS (4)
  - Communication disorder [Unknown]
  - Suicide attempt [Unknown]
  - Intentional overdose [Unknown]
  - Somnolence [Unknown]

NARRATIVE: CASE EVENT DATE: 20191025
